FAERS Safety Report 7274574-X (Version None)
Quarter: 2011Q1

REPORT INFORMATION
  Report Type: 
  Country: None (occurrence: None)
  Receive Date: 20110202
  Receipt Date: 20110202
  Transmission Date: 20110831
  Serious: Yes (Life-Threatening, Hospitalization, Disabling, Other)
  Sender: FDA-Public Use
  Company Number: None

PATIENT
  Age: 52 Year
  Sex: Male
  Weight: 87.0906 kg

DRUGS (1)
  1. PREGABALIN [Suspect]
     Indication: PROCEDURAL PAIN
     Dosage: 300 MG TWICE A DAY PO
     Route: 048

REACTIONS (15)
  - NAUSEA [None]
  - SPEECH DISORDER [None]
  - MUSCLE TWITCHING [None]
  - DYSKINESIA [None]
  - MEMORY IMPAIRMENT [None]
  - OEDEMA PERIPHERAL [None]
  - JOINT SWELLING [None]
  - MYALGIA [None]
  - DIPLOPIA [None]
  - BACK PAIN [None]
  - DRY MOUTH [None]
  - HEADACHE [None]
  - DYSPNOEA [None]
  - FLATULENCE [None]
  - VISION BLURRED [None]
